FAERS Safety Report 17674501 (Version 1)
Quarter: 2020Q2

REPORT INFORMATION
  Report Type: Spontaneous
  Country: US (occurrence: US)
  Receive Date: 20200415
  Receipt Date: 20200415
  Transmission Date: 20200714
  Serious: No
  Sender: FDA-Public Use
  Company Number: None

PATIENT
  Age: 65 Year
  Sex: Male

DRUGS (1)
  1. EPCLUSA [Suspect]
     Active Substance: SOFOSBUVIR\VELPATASVIR
     Dosage: OTHER DOSE:400/100 DF;?
     Route: 048
     Dates: start: 202002

REACTIONS (3)
  - Nausea [None]
  - Intentional product use issue [None]
  - Pain [None]

NARRATIVE: CASE EVENT DATE: 20200415
